FAERS Safety Report 20417261 (Version 1)
Quarter: 2022Q1

REPORT INFORMATION
  Report Type: Spontaneous
  Country: US (occurrence: US)
  Receive Date: 20220202
  Receipt Date: 20220202
  Transmission Date: 20220424
  Serious: Yes (Other)
  Sender: FDA-Public Use
  Company Number: US-GLAXOSMITHKLINE-US2022GSK015889

PATIENT
  Sex: Female

DRUGS (8)
  1. RANITIDINE [Suspect]
     Active Substance: RANITIDINE
     Indication: Abdominal discomfort
     Dosage: UNK, SEVERAL TIMES DAILY
     Dates: start: 199801, end: 201001
  2. RANITIDINE [Suspect]
     Active Substance: RANITIDINE
     Indication: Gastrooesophageal reflux disease
  3. RANITIDINE [Suspect]
     Active Substance: RANITIDINE
     Indication: Sinus disorder
  4. RANITIDINE [Suspect]
     Active Substance: RANITIDINE
     Indication: Upper-airway cough syndrome
  5. RANITIDINE [Suspect]
     Active Substance: RANITIDINE
     Indication: Abdominal discomfort
     Dosage: UNK, SEVERAL TIMES DAILY
     Dates: start: 199801, end: 201001
  6. RANITIDINE [Suspect]
     Active Substance: RANITIDINE
     Indication: Gastrooesophageal reflux disease
  7. RANITIDINE [Suspect]
     Active Substance: RANITIDINE
     Indication: Sinus disorder
  8. RANITIDINE [Suspect]
     Active Substance: RANITIDINE
     Indication: Upper-airway cough syndrome

REACTIONS (2)
  - Breast cancer [Unknown]
  - Cervix carcinoma [Unknown]
